FAERS Safety Report 11897528 (Version 1)
Quarter: 2016Q1

REPORT INFORMATION
  Report Type: Spontaneous
  Country: FR (occurrence: FR)
  Receive Date: 20160108
  Receipt Date: 20160108
  Transmission Date: 20160526
  Serious: Yes (Hospitalization)
  Sender: FDA-Public Use
  Company Number: FR-AUROBINDO-AUR-APL-2015-12162

PATIENT
  Age: 92 Year
  Sex: Female

DRUGS (2)
  1. AMOXICILLIN+CLAVULANIC ACID POWDER FOR ORAL SUSPENSION 1G/125 MG [Suspect]
     Active Substance: AMOXICILLIN\CLAVULANIC ACID
     Indication: SPONDYLITIS
     Dosage: 3 G, 3 TIMES A DAY
     Route: 048
     Dates: start: 20151102, end: 20151103
  2. AMOXICILLIN FILM-COATED DISPERSIBLE TABLET 1G [Suspect]
     Active Substance: AMOXICILLIN
     Indication: SPONDYLITIS
     Dosage: 3 G, 3 TIMES A DAY
     Route: 048
     Dates: start: 20151029, end: 20151031

REACTIONS (1)
  - Acute kidney injury [Recovering/Resolving]

NARRATIVE: CASE EVENT DATE: 20151104
